FAERS Safety Report 6595178-8 (Version None)
Quarter: 2010Q1

REPORT INFORMATION
  Report Type: 
  Country: None (occurrence: None)
  Receive Date: 20100212
  Receipt Date: 20100204
  Transmission Date: 20100710
  Serious: Yes (Other)
  Sender: FDA-Public Use
  Company Number: A0843409A

PATIENT
  Age: 81 Year
  Sex: Male

DRUGS (1)
  1. BIOTENE ORIGINAL TOOTHPASTE (GLUCOSE OXIDASE,  LACTOPEROXIDE, LYSOZYME [Suspect]
     Indication: DRUG USE FOR UNKNOWN INDICATION

REACTIONS (4)
  - AGEUSIA [None]
  - ANOSMIA [None]
  - CONDITION AGGRAVATED [None]
  - DRY MOUTH [None]
